FAERS Safety Report 25900906 (Version 1)
Quarter: 2025Q4

REPORT INFORMATION
  Report Type: Spontaneous
  Country: GB (occurrence: GB)
  Receive Date: 20251009
  Receipt Date: 20251009
  Transmission Date: 20260117
  Serious: Yes (Other)
  Sender: AUROBINDO
  Company Number: GB-MHRA-TPP46178382C32509053YC1759161371669

PATIENT
  Age: 86 Year
  Sex: Female
  Weight: 57 kg

DRUGS (10)
  1. RAMIPRIL [Suspect]
     Active Substance: RAMIPRIL
     Indication: Product used for unknown indication
     Dosage: 1 DOSAGE FORM, ONCE A DAY (2.5MG + 5MG + 10MG CAPSULES. TAKE ONE DAILY)
     Route: 065
     Dates: start: 20250926
  2. RAMIPRIL [Suspect]
     Active Substance: RAMIPRIL
     Indication: Product used for unknown indication
     Dosage: 1 DOSAGE FORM, ONCE A DAY (2.5MG + 5MG + 10MG CAPSULES. TAKE ONE DAILY )
     Route: 065
     Dates: start: 20250926
  3. RAMIPRIL [Suspect]
     Active Substance: RAMIPRIL
     Indication: Product used for unknown indication
     Dosage: 1 DOSAGE FORM, ONCE A DAY (2.5MG + 5MG + 10MG CAPSULES. TAKE ONE DAILY)
     Route: 065
     Dates: start: 20250926
  4. BETAMETHASONE VALERATE [Concomitant]
     Active Substance: BETAMETHASONE VALERATE
     Indication: Ill-defined disorder
     Dosage: UNK UNK, TWO TIMES A DAY (APPLY TWICE DAILY TO SCALP AND ALLOW TO DRY NAT...)
     Route: 065
     Dates: start: 20250630, end: 20250728
  5. AMITRIPTYLINE HYDROCHLORIDE [Concomitant]
     Active Substance: AMITRIPTYLINE HYDROCHLORIDE
     Indication: Ill-defined disorder
     Dosage: UNK UNK, DAILY (FOR PAIN: START WITH 10MG ONCE DAILY IN THE EVE...)
     Route: 065
     Dates: start: 20250711, end: 20250808
  6. AMLODIPINE [Concomitant]
     Active Substance: AMLODIPINE BESYLATE
     Indication: Ill-defined disorder
     Dosage: UNK UNK, DAILY (ONE TO BE TAKEN EACH DAY)
     Route: 065
     Dates: start: 20230130
  7. ATENOLOL [Concomitant]
     Active Substance: ATENOLOL
     Indication: Ill-defined disorder
     Dosage: UNK UNK, DAILY (ONE TO BE TAKEN DAILY)
     Route: 065
     Dates: start: 20230130
  8. OMEPRAZOLE [Concomitant]
     Active Substance: OMEPRAZOLE
     Indication: Ill-defined disorder
     Dosage: 1 DOSAGE FORM, TWO TIMES A DAY (TAKE ONE CAPSULE TO BE TAKEN TWICE DAILY WHEN N...)
     Route: 065
     Dates: start: 20230130
  9. PROCHLORPERAZINE [Concomitant]
     Active Substance: PROCHLORPERAZINE
     Indication: Ill-defined disorder
     Dosage: UNK (ONE TO BE TAKEN TWICE OR THREE TIMES A DAY)
     Route: 065
     Dates: start: 20230130, end: 20250917
  10. ATORVASTATIN [Concomitant]
     Active Substance: ATORVASTATIN
     Indication: Ill-defined disorder
     Dosage: 1 DOSAGE FORM, AT BED TIME (ONE TABLET AT NIGHT TO LOWER CHOLESTEROL)
     Route: 065
     Dates: start: 20240930

REACTIONS (1)
  - Chest discomfort [Recovered/Resolved]
